FAERS Safety Report 9680510 (Version 1)
Quarter: 2013Q4

REPORT INFORMATION
  Report Type: Spontaneous
  Country: US (occurrence: US)
  Receive Date: 20131111
  Receipt Date: 20131111
  Transmission Date: 20140711
  Serious: No
  Sender: FDA-Public Use
  Company Number: US-PFIZER INC-2013317067

PATIENT
  Age: 86 Year
  Sex: Female
  Weight: 81.63 kg

DRUGS (1)
  1. CELEBREX [Suspect]
     Indication: ARTHRALGIA
     Dosage: 200 MG, 1X/DAY

REACTIONS (2)
  - Drug ineffective [Unknown]
  - Gait disturbance [Unknown]
